FAERS Safety Report 4944011-6 (Version None)
Quarter: 2006Q1

REPORT INFORMATION
  Report Type: 
  Country: None (occurrence: None)
  Receive Date: 20060309
  Receipt Date: 20060123
  Transmission Date: 20060701
  Serious: No
  Sender: FDA-Public Use
  Company Number: 2006-PI018

PATIENT
  Sex: Male

DRUGS (1)
  1. CHLORAPREP WITH TINT [Suspect]
     Indication: PREOPERATIVE CARE
     Dosage: ONCE, TOPICAL
     Route: 061

REACTIONS (4)
  - DEVICE FAILURE [None]
  - INJURY [None]
  - PHARMACEUTICAL PRODUCT COMPLAINT [None]
  - WOUND [None]
